FAERS Safety Report 8828993 (Version 4)
Quarter: 2014Q2

REPORT INFORMATION
  Report Type: Spontaneous
  Country: SE (occurrence: SE)
  Receive Date: 20121008
  Receipt Date: 20140515
  Transmission Date: 20141212
  Serious: Yes (Other)
  Sender: FDA-Public Use
  Company Number: SE-PFIZER INC-2012241017

PATIENT
  Age: 77 Year
  Sex: Male

DRUGS (8)
  1. SPIRONOLACTONE [Suspect]
     Indication: HYPERTENSION
     Dosage: 25MG, 1X/DAY
     Dates: end: 20100918
  2. KAVEPENIN [Suspect]
     Indication: INFECTION
     Dosage: 1 G, 3X/DAY
     Dates: start: 20091215, end: 20091224
  3. KAVEPENIN [Suspect]
     Dosage: UNK
     Dates: start: 2010
  4. ENALAPRIL [Concomitant]
     Dosage: UNK
  5. ALFADIL [Concomitant]
     Dosage: 8 MG, UNK
  6. ATENOLOL [Concomitant]
     Dosage: UNK
  7. SERTRALINE [Concomitant]
  8. DICLOFENAC [Concomitant]

REACTIONS (20)
  - Hyperkalaemia [Recovered/Resolved]
  - Road traffic accident [Unknown]
  - Pneumonia [Unknown]
  - Myocardial infarction [Unknown]
  - Dizziness [Unknown]
  - Fatigue [Unknown]
  - Confusional state [Unknown]
  - Blood creatinine increased [Not Recovered/Not Resolved]
  - Pruritus [Not Recovered/Not Resolved]
  - Somnolence [Unknown]
  - Decreased appetite [Unknown]
  - Dehydration [Unknown]
  - Weight decreased [Not Recovered/Not Resolved]
  - Headache [Unknown]
  - Blood pressure fluctuation [Recovered/Resolved]
  - Pyrexia [Unknown]
  - Constipation [Unknown]
  - Diarrhoea [Unknown]
  - Abdominal pain [Unknown]
  - Gout [Unknown]
